FAERS Safety Report 8869229 (Version 1)
Quarter: 2012Q4

REPORT INFORMATION
  Report Type: 
  Country: US (occurrence: US)
  Receive Date: 20121023
  Receipt Date: 20121023
  Transmission Date: 20130627
  Serious: Yes (Hospitalization)
  Sender: FDA-Public Use
  Company Number: US-AMGEN-USASP2012033400

PATIENT
  Age: 60 Year
  Sex: Female
  Weight: 83.9 kg

DRUGS (13)
  1. ENBREL [Suspect]
     Indication: PRODUCT USED FOR UNKNOWN INDICATION
     Dosage: 50 mg, qwk
     Route: 058
  2. CYMBALTA [Concomitant]
     Dosage: 30 mg, UNK
     Route: 048
  3. LITHIUM CARBONATE [Concomitant]
     Dosage: 300 mg, UNK
     Route: 048
  4. METHOTREXATE [Concomitant]
     Dosage: 2.5 mg, UNK
     Route: 048
  5. TEGRETOL XR [Concomitant]
     Dosage: 200 mg, UNK
     Route: 048
  6. LISINOPRIL [Concomitant]
     Dosage: 5 mg, UNK
     Route: 048
  7. SIMVASTATIN [Concomitant]
     Dosage: 40 mg, UNK
     Route: 048
  8. ASPIRIN [Concomitant]
     Dosage: 325 mg, UNK
     Route: 048
  9. FOLIC ACID ALMUS [Concomitant]
     Dosage: 1 mg, UNK
     Route: 048
  10. ALBUTEROL                          /00139501/ [Concomitant]
     Dosage: 90 mug, UNK
  11. METOPROLOL [Concomitant]
     Dosage: 50 mg, UNK
     Route: 048
  12. SEROQUEL [Concomitant]
     Dosage: 100 mg, UNK
     Route: 048
  13. NITROGLYCERIN [Concomitant]
     Dosage: 0.4 mg, UNK
     Route: 048

REACTIONS (1)
  - Subcutaneous abscess [Unknown]
